FAERS Safety Report 18434236 (Version 1)
Quarter: 2020Q4

REPORT INFORMATION
  Report Type: Spontaneous
  Country: CN (occurrence: CN)
  Receive Date: 20201027
  Receipt Date: 20201027
  Transmission Date: 20210114
  Serious: Yes (Life-Threatening)
  Sender: FDA-Public Use
  Company Number: CN-ASTRAZENECA-2020SF38951

PATIENT
  Age: 17577 Day
  Sex: Female
  Weight: 48 kg

DRUGS (3)
  1. PULMICORT RESPULES [Suspect]
     Active Substance: BUDESONIDE
     Indication: PAPILLARY THYROID CANCER
     Route: 055
     Dates: start: 20200921, end: 20200922
  2. ACETYLCYSTEINE. [Suspect]
     Active Substance: ACETYLCYSTEINE
     Indication: PAPILLARY THYROID CANCER
     Route: 055
     Dates: start: 20200921, end: 20200922
  3. BRICANYL [Suspect]
     Active Substance: TERBUTALINE SULFATE
     Indication: PAPILLARY THYROID CANCER
     Route: 055
     Dates: start: 20200921, end: 20200922

REACTIONS (2)
  - Palpitations [Recovering/Resolving]
  - Flushing [Recovering/Resolving]

NARRATIVE: CASE EVENT DATE: 20200922
